FAERS Safety Report 24981971 (Version 1)
Quarter: 2025Q1

REPORT INFORMATION
  Report Type: Other
  Country: IN (occurrence: IN)
  Receive Date: 20250218
  Receipt Date: 20250218
  Transmission Date: 20250408
  Serious: Yes (Hospitalization, Other)
  Sender: INNOGENIX, LLC
  Company Number: IN-Innogenix, LLC-2171285

PATIENT
  Age: 3 Decade
  Sex: Male

DRUGS (2)
  1. HALOPERIDOL [Suspect]
     Active Substance: HALOPERIDOL
     Indication: Psychotic disorder
  2. ALPRAZOLAM [Concomitant]
     Active Substance: ALPRAZOLAM

REACTIONS (2)
  - Pneumonia aspiration [Recovered/Resolved]
  - Dystonia [Recovered/Resolved]
